FAERS Safety Report 9256299 (Version 1)
Quarter: 2013Q2

REPORT INFORMATION
  Report Type: Spontaneous
  Country: US (occurrence: US)
  Receive Date: 20130425
  Receipt Date: 20130425
  Transmission Date: 20140414
  Serious: No
  Sender: FDA-Public Use
  Company Number: US-AMGEN-USASP2012065884

PATIENT
  Age: 53 Year
  Sex: Male

DRUGS (4)
  1. NEULASTA [Suspect]
     Indication: CHEMOTHERAPY
     Dosage: 6 MG, AFTER CHEMO
  2. FLUDARABINE [Concomitant]
     Dosage: UNK
  3. CYTOXAN [Concomitant]
     Dosage: UNK
  4. MITOXANTRONE [Concomitant]
     Dosage: UNK

REACTIONS (3)
  - Flushing [Unknown]
  - Nausea [Unknown]
  - Hyperhidrosis [Unknown]
